FAERS Safety Report 22734047 (Version 3)
Quarter: 2024Q2

REPORT INFORMATION
  Report Type: Spontaneous
  Country: CA (occurrence: CA)
  Receive Date: 20230721
  Receipt Date: 20240509
  Transmission Date: 20240716
  Serious: Yes (Death, Life-Threatening, Hospitalization, Other)
  Sender: FDA-Public Use
  Company Number: CA-SA-2020SA323545

PATIENT
  Age: 72 Year
  Sex: Female
  Weight: 61 kg

DRUGS (72)
  1. PREVACID [Suspect]
     Active Substance: LANSOPRAZOLE
     Indication: Product used for unknown indication
     Dosage: UNK
  2. PREVACID [Suspect]
     Active Substance: LANSOPRAZOLE
     Dosage: 30 MILLIGRAM, Q12H
     Route: 048
  3. PREVACID [Suspect]
     Active Substance: LANSOPRAZOLE
     Dosage: DOSE DESCRIPTION : 30 MG, BID
     Route: 048
  4. PREVACID [Suspect]
     Active Substance: LANSOPRAZOLE
     Dosage: UNK
  5. PREVACID [Suspect]
     Active Substance: LANSOPRAZOLE
  6. PREVACID [Suspect]
     Active Substance: LANSOPRAZOLE
     Dosage: 30 MILLIGRAM, Q12H
  7. PREVACID [Suspect]
     Active Substance: LANSOPRAZOLE
     Dosage: UNK
  8. PREVACID [Suspect]
     Active Substance: LANSOPRAZOLE
     Dosage: 30 MILLIGRAM, BID
     Route: 048
  9. PREVACID [Suspect]
     Active Substance: LANSOPRAZOLE
  10. DULCOLAX STIMULANT LAXATIVE [Suspect]
     Active Substance: BISACODYL
     Indication: Product used for unknown indication
     Dosage: DOSE DESCRIPTION : 5 MG
     Route: 048
  11. DULCOLAX STIMULANT LAXATIVE [Suspect]
     Active Substance: BISACODYL
     Dosage: DOSE DESCRIPTION : 0.5 MG
  12. DULCOLAX STIMULANT LAXATIVE [Suspect]
     Active Substance: BISACODYL
     Dosage: UNK
  13. DULCOLAX STIMULANT LAXATIVE [Suspect]
     Active Substance: BISACODYL
     Dosage: UNK
  14. DULCOLAX STIMULANT LAXATIVE [Suspect]
     Active Substance: BISACODYL
     Dosage: 150 MILLIGRAM, QD
     Route: 048
  15. DULCOLAX STIMULANT LAXATIVE [Suspect]
     Active Substance: BISACODYL
     Dosage: UNK
  16. DULCOLAX STIMULANT LAXATIVE [Suspect]
     Active Substance: BISACODYL
     Dosage: 150 MILLIGRAM, QD
     Route: 048
  17. MELATONIN [Suspect]
     Active Substance: MELATONIN
     Indication: Product used for unknown indication
     Dosage: DOSE DESCRIPTION : 3 MG, QD
     Route: 060
  18. MELATONIN [Suspect]
     Active Substance: MELATONIN
     Dosage: DOSE DESCRIPTION : UNK
  19. POLYETHYLENE GLYCOL 3350 [Suspect]
     Active Substance: POLYETHYLENE GLYCOL 3350
     Indication: Product used for unknown indication
     Dosage: 17 GRAM, QD
     Route: 048
  20. POLYETHYLENE GLYCOL 3350 [Suspect]
     Active Substance: POLYETHYLENE GLYCOL 3350
     Dosage: DOSE DESCRIPTION : UNK
  21. POLYETHYLENE GLYCOL 3350 [Suspect]
     Active Substance: POLYETHYLENE GLYCOL 3350
     Dosage: DOSE DESCRIPTION : 17 G, QD
  22. ONDANSETRON [Suspect]
     Active Substance: ONDANSETRON
     Indication: Product used for unknown indication
     Dosage: 4 MILLIGRAM
     Route: 060
  23. ONDANSETRON [Suspect]
     Active Substance: ONDANSETRON
     Dosage: 4 MILLIGRAM
     Route: 060
  24. BUPROPION [Suspect]
     Active Substance: BUPROPION
     Indication: Product used for unknown indication
     Dosage: DOSE DESCRIPTION : 150 MG, QD
     Route: 048
  25. BUPROPION [Suspect]
     Active Substance: BUPROPION
     Dosage: DOSE DESCRIPTION : UNK
  26. BUPROPION [Suspect]
     Active Substance: BUPROPION
     Dosage: DOSE DESCRIPTION : 150 MG, QD
  27. CLONAZEPAM [Suspect]
     Active Substance: CLONAZEPAM
     Indication: Product used for unknown indication
     Dosage: DOSE DESCRIPTION : 0.25 MG
     Route: 048
  28. CLONAZEPAM [Suspect]
     Active Substance: CLONAZEPAM
     Dosage: DOSE DESCRIPTION : UNK
  29. CLONAZEPAM [Suspect]
     Active Substance: CLONAZEPAM
     Dosage: DOSE DESCRIPTION : UNK
  30. CLONAZEPAM [Suspect]
     Active Substance: CLONAZEPAM
     Dosage: DOSE DESCRIPTION : 0.25 MG
     Route: 048
  31. LINACLOTIDE [Suspect]
     Active Substance: LINACLOTIDE
     Indication: Irritable bowel syndrome
     Dosage: DOSE DESCRIPTION : 145 UG, QD
     Route: 048
  32. LINACLOTIDE [Suspect]
     Active Substance: LINACLOTIDE
     Dosage: DOSE DESCRIPTION : UNK
  33. SODIUM LAURYL SULFOACETATE [Suspect]
     Active Substance: SODIUM LAURYL SULFOACETATE
     Indication: Product used for unknown indication
     Dosage: DOSE DESCRIPTION : UNK
  34. SODIUM LAURYL SULFOACETATE [Suspect]
     Active Substance: SODIUM LAURYL SULFOACETATE
     Dosage: DOSE DESCRIPTION : 1 DF
     Route: 054
  35. SODIUM LAURYL SULFOACETATE [Suspect]
     Active Substance: SODIUM LAURYL SULFOACETATE
     Dosage: DOSE DESCRIPTION : UNK
  36. SODIUM CITRATE [Suspect]
     Active Substance: SODIUM CITRATE
     Indication: Product used for unknown indication
     Dosage: DOSE DESCRIPTION : UNK
  37. POTASSIUM CHLORIDE [Suspect]
     Active Substance: POTASSIUM CHLORIDE
     Indication: Product used for unknown indication
     Dosage: DOSE DESCRIPTION : UNK
     Route: 048
  38. POTASSIUM CHLORIDE [Suspect]
     Active Substance: POTASSIUM CHLORIDE
     Dosage: DOSE DESCRIPTION : UNK
  39. POTASSIUM CHLORIDE [Suspect]
     Active Substance: POTASSIUM CHLORIDE
     Dosage: DOSE DESCRIPTION : 2 DF, QD, 1 DOSAGE FORM, BID
     Route: 048
  40. POTASSIUM CHLORIDE [Suspect]
     Active Substance: POTASSIUM CHLORIDE
     Dosage: DOSE DESCRIPTION : UNK
     Route: 065
  41. POTASSIUM CHLORIDE [Suspect]
     Active Substance: POTASSIUM CHLORIDE
     Dosage: 1 DOSAGE FORM, BID
     Route: 048
  42. BENZTROPINE [Suspect]
     Active Substance: BENZTROPINE
     Indication: Product used for unknown indication
     Dosage: DOSE DESCRIPTION : 0.5 MG, BID
     Route: 048
  43. BENZTROPINE [Suspect]
     Active Substance: BENZTROPINE
     Dosage: DOSE DESCRIPTION : UNK
  44. BENZTROPINE [Suspect]
     Active Substance: BENZTROPINE
     Dosage: DOSE DESCRIPTION : UNK
  45. BENZTROPINE [Suspect]
     Active Substance: BENZTROPINE
     Dosage: DOSE DESCRIPTION : 0.5 MG, BID
  46. PREMARIN [Suspect]
     Active Substance: ESTROGENS, CONJUGATED
     Indication: Product used for unknown indication
     Dosage: DOSE DESCRIPTION : 0.625 MG, QD
     Route: 067
  47. PREMARIN [Suspect]
     Active Substance: ESTROGENS, CONJUGATED
     Dosage: DOSE DESCRIPTION : UNK
  48. FLOVENT HFA [Suspect]
     Active Substance: FLUTICASONE PROPIONATE
     Indication: Product used for unknown indication
     Dosage: 500 MICROGRAM, QD
     Route: 045
  49. FLOVENT HFA [Suspect]
     Active Substance: FLUTICASONE PROPIONATE
     Dosage: DOSE DESCRIPTION : 250 MG, BID
     Route: 055
  50. FLOVENT HFA [Suspect]
     Active Substance: FLUTICASONE PROPIONATE
     Dosage: DOSE DESCRIPTION : 250 MG, BID
     Route: 050
  51. FLOVENT HFA [Suspect]
     Active Substance: FLUTICASONE PROPIONATE
     Dosage: DOSE DESCRIPTION : 500 UG, QD, 250 MICROGRAM, BID
     Route: 055
  52. FLOVENT HFA [Suspect]
     Active Substance: FLUTICASONE PROPIONATE
     Dosage: DOSE DESCRIPTION : UNK
  53. FLOVENT HFA [Suspect]
     Active Substance: FLUTICASONE PROPIONATE
     Dosage: DOSE DESCRIPTION : 500 UG, QD, 250 MICROGRAM, BID
     Route: 055
  54. FLOVENT HFA [Suspect]
     Active Substance: FLUTICASONE PROPIONATE
     Dosage: DOSE DESCRIPTION : 500 UG, QD, 250 MICROGRAM, BID
     Route: 055
  55. FLOVENT HFA [Suspect]
     Active Substance: FLUTICASONE PROPIONATE
     Dosage: DOSE DESCRIPTION : UNK
  56. FLOVENT HFA [Suspect]
     Active Substance: FLUTICASONE PROPIONATE
     Dosage: 500 MICROGRAM, QD
     Route: 055
  57. FLOVENT HFA [Suspect]
     Active Substance: FLUTICASONE PROPIONATE
     Dosage: 500 MICROGRAM, QD
     Route: 050
  58. SYNTHROID [Suspect]
     Active Substance: LEVOTHYROXINE SODIUM
     Indication: Product used for unknown indication
     Dosage: 125 MICROGRAM, QD
     Route: 048
  59. SYNTHROID [Suspect]
     Active Substance: LEVOTHYROXINE SODIUM
     Dosage: 125 MICROGRAM, QD
     Route: 048
  60. SYNTHROID [Suspect]
     Active Substance: LEVOTHYROXINE SODIUM
     Dosage: DOSE DESCRIPTION : UNK
  61. SYNTHROID [Suspect]
     Active Substance: LEVOTHYROXINE SODIUM
     Dosage: DOSE DESCRIPTION : UNK
  62. BUPROPION HYDROCHLORIDE [Suspect]
     Active Substance: BUPROPION HYDROCHLORIDE
     Indication: Product used for unknown indication
  63. BUPROPION HYDROCHLORIDE [Suspect]
     Active Substance: BUPROPION HYDROCHLORIDE
  64. BUPROPION HYDROCHLORIDE [Suspect]
     Active Substance: BUPROPION HYDROCHLORIDE
  65. ZOFRAN [Suspect]
     Active Substance: ONDANSETRON HYDROCHLORIDE
     Indication: Product used for unknown indication
     Dosage: 4 MILLIGRAM
  66. ZOFRAN [Suspect]
     Active Substance: ONDANSETRON HYDROCHLORIDE
     Dosage: 4 MILLIGRAM
     Route: 060
  67. SODIUM LAURYL SULFOACETATE [Suspect]
     Active Substance: SODIUM LAURYL SULFOACETATE
     Indication: Product used for unknown indication
     Route: 065
  68. LAMOTRIGINE [Suspect]
     Active Substance: LAMOTRIGINE
     Indication: Product used for unknown indication
     Dosage: UNK
  69. LAMOTRIGINE [Suspect]
     Active Substance: LAMOTRIGINE
     Dosage: 75 MILLIGRAM, QD
     Route: 048
  70. LAMOTRIGINE [Suspect]
     Active Substance: LAMOTRIGINE
     Dosage: 75 MILLIGRAM, QD
  71. LAMOTRIGINE [Suspect]
     Active Substance: LAMOTRIGINE
     Dosage: 75 MILLIGRAM, QD
     Route: 048
  72. LAMOTRIGINE [Suspect]
     Active Substance: LAMOTRIGINE
     Dosage: 75 MILLIGRAM, QD

REACTIONS (2)
  - Cardiac arrest [Fatal]
  - Death [Fatal]
